FAERS Safety Report 25191003 (Version 1)
Quarter: 2025Q2

REPORT INFORMATION
  Report Type: Spontaneous
  Country: DZ (occurrence: DZ)
  Receive Date: 20250411
  Receipt Date: 20250411
  Transmission Date: 20250716
  Serious: Yes (Other)
  Sender: IPSEN
  Company Number: DZ-IPSEN Group, Research and Development-2025-08311

PATIENT
  Age: 50 Year
  Sex: Female

DRUGS (4)
  1. BOTULINUM TOXIN TYPE A [Suspect]
     Active Substance: BOTULINUM TOXIN TYPE A
     Indication: Hyperhidrosis
     Route: 058
  2. BOTULINUM TOXIN TYPE A [Suspect]
     Active Substance: BOTULINUM TOXIN TYPE A
     Indication: Hyperhidrosis
  3. BOTULINUM TOXIN TYPE A [Suspect]
     Active Substance: BOTULINUM TOXIN TYPE A
     Indication: Hyperhidrosis
  4. BOTULINUM TOXIN TYPE A [Suspect]
     Active Substance: BOTULINUM TOXIN TYPE A
     Indication: Off label use

REACTIONS (3)
  - Myasthenia gravis [Not Recovered/Not Resolved]
  - Neuromuscular toxicity [Unknown]
  - Off label use [Unknown]
